FAERS Safety Report 6408164-5 (Version None)
Quarter: 2009Q4

REPORT INFORMATION
  Report Type: 
  Country: None (occurrence: None)
  Receive Date: 20091019
  Receipt Date: 20091005
  Transmission Date: 20100525
  Serious: Yes (Hospitalization)
  Sender: FDA-Public Use
  Company Number: 2009AC000100

PATIENT
  Age: 68 Year
  Sex: Female

DRUGS (11)
  1. DIGOXIN [Suspect]
  2. ASPIRIN [Concomitant]
  3. ARIMIDEX [Concomitant]
  4. CALCIUM [Concomitant]
  5. ZETIA [Concomitant]
  6. GEMFIBROZIL [Concomitant]
  7. LISINOPRIL [Concomitant]
  8. ALLOPURINOL [Concomitant]
  9. SIMVASTATIN [Concomitant]
  10. INDERAL [Concomitant]
  11. SELENIUM [Concomitant]

REACTIONS (6)
  - ATRIOVENTRICULAR BLOCK [None]
  - DYSLIPIDAEMIA [None]
  - DYSPNOEA [None]
  - HYPERTENSION [None]
  - SENSATION OF HEAVINESS [None]
  - THERAPEUTIC AGENT TOXICITY [None]
